FAERS Safety Report 7460862-0 (Version None)
Quarter: 2011Q2

REPORT INFORMATION
  Report Type: 
  Country: None (occurrence: None)
  Receive Date: 20110505
  Receipt Date: 20110503
  Transmission Date: 20111010
  Serious: Yes (Hospitalization)
  Sender: FDA-Public Use
  Company Number: DE-PFIZER INC-2011094745

PATIENT
  Sex: Male

DRUGS (1)
  1. LYRICA [Suspect]
     Indication: HERPES ZOSTER
     Dosage: UNK
     Dates: start: 20090101

REACTIONS (5)
  - GAIT DISTURBANCE [None]
  - WITHDRAWAL SYNDROME [None]
  - FALL [None]
  - CONFUSIONAL STATE [None]
  - ASTHENIA [None]
